FAERS Safety Report 10479046 (Version 1)
Quarter: 2014Q3

REPORT INFORMATION
  Report Type: Report from Study
  Country: US (occurrence: US)
  Receive Date: 20140926
  Receipt Date: 20140926
  Transmission Date: 20150326
  Serious: Yes (Hospitalization)
  Sender: FDA-Public Use
  Company Number: PHEH2014US018741

PATIENT
  Sex: Female

DRUGS (2)
  1. CLOZARIL [Suspect]
     Active Substance: CLOZAPINE
     Dosage: UNK
  2. FAZACLO [Concomitant]
     Active Substance: CLOZAPINE
     Dosage: UNK

REACTIONS (4)
  - Anaemia [Unknown]
  - Hypotension [Unknown]
  - Hyporesponsive to stimuli [Unknown]
  - Asthenia [Unknown]
